FAERS Safety Report 9715982 (Version 1)
Quarter: 2013Q4

REPORT INFORMATION
  Report Type: Spontaneous
  Country: DE (occurrence: DE)
  Receive Date: 20131127
  Receipt Date: 20131127
  Transmission Date: 20140711
  Serious: Yes (Other)
  Sender: FDA-Public Use
  Company Number: DE-MERCK-1311DEU010345

PATIENT
  Age: 56 Year
  Sex: Male

DRUGS (2)
  1. PEGINTRON [Suspect]
     Indication: HEPATITIS C
     Dosage: UNK
     Route: 058
     Dates: start: 20130829, end: 20131118
  2. RIBAVIRIN [Suspect]
     Indication: HEPATITIS C
     Dosage: UNK
     Route: 048
     Dates: start: 20130829, end: 20131118

REACTIONS (4)
  - Respiratory failure [Unknown]
  - Rash [Unknown]
  - Pruritus [Unknown]
  - Anaemia [Unknown]
